FAERS Safety Report 24741281 (Version 1)
Quarter: 2024Q4

REPORT INFORMATION
  Report Type: Spontaneous
  Country: US (occurrence: US)
  Receive Date: 20241217
  Receipt Date: 20241217
  Transmission Date: 20250115
  Serious: No
  Sender: ROCHE
  Company Number: US-ROCHE-10000157059

PATIENT

DRUGS (1)
  1. ALECENSA [Suspect]
     Active Substance: ALECTINIB HYDROCHLORIDE
     Indication: Product used for unknown indication
     Dosage: TWO 150MG CAPSULES BY MOUTH TWICE DAILY
     Route: 048

REACTIONS (2)
  - No adverse event [Unknown]
  - Incorrect dose administered [Unknown]
